FAERS Safety Report 5282035-2 (Version None)
Quarter: 2007Q1

REPORT INFORMATION
  Report Type: 
  Country: None (occurrence: None)
  Receive Date: 20070330
  Receipt Date: 20070322
  Transmission Date: 20070707
  Serious: Yes (Disabling, Other)
  Sender: FDA-Public Use
  Company Number: US-MERCK-0609USA04112

PATIENT
  Age: 76 Year
  Sex: Female

DRUGS (22)
  1. FOSAMAX [Suspect]
     Indication: OSTEOPOROSIS
     Route: 048
     Dates: end: 20060401
  2. FOSAMAX [Suspect]
     Route: 048
     Dates: start: 19991101
  3. FOSAMAX [Suspect]
     Indication: OSTEOPOROSIS PROPHYLAXIS
     Route: 048
     Dates: end: 20060401
  4. FOSAMAX [Suspect]
     Route: 048
     Dates: start: 19991101
  5. TERAZOSIN HYDROCHLORIDE [Concomitant]
     Indication: BLOOD PRESSURE
     Route: 065
     Dates: start: 20010101
  6. ZOCOR [Concomitant]
     Indication: BLOOD CHOLESTEROL
     Route: 065
     Dates: start: 20030101
  7. PROPRANOLOL HYDROCHLORIDE [Concomitant]
     Indication: BLOOD PRESSURE
     Route: 065
     Dates: start: 20000101
  8. CAPTOPRIL [Concomitant]
     Indication: BLOOD PRESSURE
     Route: 065
     Dates: start: 20000101, end: 20070201
  9. NITROGLYCERIN [Concomitant]
     Indication: PROPHYLAXIS
     Route: 065
     Dates: start: 20010101
  10. COZAAR [Concomitant]
     Indication: BLOOD PRESSURE
     Route: 065
     Dates: start: 20030101
  11. COZAAR [Concomitant]
     Indication: SWELLING
     Route: 065
     Dates: start: 20030101
  12. ASPIRIN [Concomitant]
     Indication: CARDIAC DISORDER
     Route: 065
     Dates: start: 20000101
  13. AVANDIA [Concomitant]
     Indication: DIABETES MELLITUS
     Route: 065
     Dates: start: 20010101, end: 20070201
  14. AVANDIA [Concomitant]
     Route: 065
     Dates: start: 20070201
  15. GLYBURIDE [Concomitant]
     Indication: DIABETES MELLITUS
     Route: 065
     Dates: start: 20000101
  16. HYDROCHLOROTHIAZIDE [Concomitant]
     Indication: BLOOD PRESSURE
     Route: 065
     Dates: start: 20050101
  17. HYDROCHLOROTHIAZIDE [Concomitant]
     Indication: SWELLING
     Route: 065
     Dates: start: 20050101
  18. CALCIUM (UNSPECIFIED) AND VITAMIN D (UNSPECIFIED) [Concomitant]
     Indication: BONE DISORDER
     Route: 065
     Dates: start: 20000101
  19. GLUCOPHAGE [Concomitant]
     Indication: DIABETES MELLITUS
     Route: 065
     Dates: start: 20000101, end: 20060101
  20. CARDURA [Concomitant]
     Indication: BLOOD PRESSURE
     Route: 065
     Dates: start: 20000101, end: 20000101
  21. FELODIPINE [Concomitant]
     Indication: BLOOD PRESSURE
     Route: 065
     Dates: start: 20050101, end: 20070201
  22. DILTIAZEM HYDROCHLORIDE [Concomitant]
     Indication: BLOOD PRESSURE
     Route: 065
     Dates: start: 20000101, end: 20020101

REACTIONS (11)
  - ANAEMIA [None]
  - ANGIOPATHY [None]
  - ANXIETY [None]
  - BLOOD DISORDER [None]
  - DEPRESSION [None]
  - FALL [None]
  - GALLBLADDER DISORDER [None]
  - JAW FRACTURE [None]
  - OSTEOMYELITIS [None]
  - OSTEONECROSIS [None]
  - WRIST FRACTURE [None]
